FAERS Safety Report 21676511 (Version 1)
Quarter: 2022Q4

REPORT INFORMATION
  Report Type: Report from Study
  Country: US (occurrence: US)
  Receive Date: 20221202
  Receipt Date: 20221202
  Transmission Date: 20230113
  Serious: Yes (Other)
  Sender: FDA-Public Use
  Company Number: US-TEVA-2022-US-2831180

PATIENT
  Sex: Female

DRUGS (3)
  1. CLARAVIS [Suspect]
     Active Substance: ISOTRETINOIN
     Indication: Product used for unknown indication
     Dosage: STRENGTH: 20 MG
  2. CLARAVIS [Suspect]
     Active Substance: ISOTRETINOIN
     Dosage: STRENGTH: 30 MG
  3. CLARAVIS [Suspect]
     Active Substance: ISOTRETINOIN
     Dosage: STRENGTH: 40 MG

REACTIONS (1)
  - Unintended pregnancy [Unknown]

NARRATIVE: CASE EVENT DATE: 20210101
